FAERS Safety Report 23457884 (Version 1)
Quarter: 2024Q1

REPORT INFORMATION
  Report Type: Spontaneous
  Country: US (occurrence: None)
  Receive Date: 20240130
  Receipt Date: 20240130
  Transmission Date: 20240409
  Serious: Yes (unspecified)
  Sender: FDA-Public Use
  Company Number: None

PATIENT
  Age: 64 Year
  Sex: Female

DRUGS (1)
  1. AFINITOR [Suspect]
     Active Substance: EVEROLIMUS
     Indication: Endocrine neoplasm malignant
     Dosage: FREQUENCY : EVERY OTHER DAY;?

REACTIONS (3)
  - Haemoglobin decreased [None]
  - Renal impairment [None]
  - Fatigue [None]
